FAERS Safety Report 16472232 (Version 8)
Quarter: 2022Q2

REPORT INFORMATION
  Report Type: Report from Study
  Country: US (occurrence: US)
  Receive Date: 20190625
  Receipt Date: 20220624
  Transmission Date: 20220720
  Serious: Yes (Other)
  Sender: FDA-Public Use
  Company Number: US-BRISTOL-MYERS SQUIBB COMPANY-BMS-2019-060596

PATIENT
  Age: 65 Year
  Sex: Female

DRUGS (1)
  1. ELIQUIS [Suspect]
     Active Substance: APIXABAN
     Indication: Pulmonary embolism
     Dosage: UNK
     Route: 065
     Dates: start: 20161001, end: 202112

REACTIONS (2)
  - Back disorder [Unknown]
  - Asthma late onset [Unknown]

NARRATIVE: CASE EVENT DATE: 20190606
